FAERS Safety Report 18687529 (Version 1)
Quarter: 2020Q4

REPORT INFORMATION
  Report Type: Spontaneous
  Country: PH (occurrence: PH)
  Receive Date: 20201231
  Receipt Date: 20201231
  Transmission Date: 20210114
  Serious: Yes (Hospitalization)
  Sender: FDA-Public Use
  Company Number: PH-ASTELLAS-2020US046031

PATIENT
  Age: 76 Year
  Sex: Male

DRUGS (2)
  1. XTANDI [Suspect]
     Active Substance: ENZALUTAMIDE
     Indication: PROSTATE CANCER
     Route: 065
     Dates: start: 20201221
  2. XTANDI [Suspect]
     Active Substance: ENZALUTAMIDE
     Route: 065
     Dates: start: 20201222

REACTIONS (4)
  - Urinary tract infection [Unknown]
  - Intentional product misuse [Unknown]
  - Abdominal pain upper [Unknown]
  - Underdose [Unknown]

NARRATIVE: CASE EVENT DATE: 202012
